FAERS Safety Report 7966197-1 (Version None)
Quarter: 2011Q4

REPORT INFORMATION
  Report Type: 
  Country: None (occurrence: None)
  Receive Date: 20111208
  Receipt Date: 20111201
  Transmission Date: 20120403
  Serious: Yes (Other)
  Sender: FDA-Public Use
  Company Number: PHHY2011IQ105231

PATIENT
  Age: 45 Year
  Sex: Male

DRUGS (1)
  1. DICLOFENAC [Suspect]
     Indication: PROCEDURAL PAIN
     Route: 030

REACTIONS (4)
  - EMBOLIA CUTIS MEDICAMENTOSA [None]
  - INJECTION SITE NECROSIS [None]
  - ERYTHEMA [None]
  - PAIN [None]
